FAERS Safety Report 18913129 (Version 2)
Quarter: 2021Q1

REPORT INFORMATION
  Report Type: Report from Study
  Country: US (occurrence: US)
  Receive Date: 20210218
  Receipt Date: 20210326
  Transmission Date: 20210420
  Serious: Yes (Other)
  Sender: FDA-Public Use
  Company Number: NVSC2021US028389

PATIENT
  Sex: Male

DRUGS (2)
  1. COSENTYX [Suspect]
     Active Substance: SECUKINUMAB
     Indication: PSORIASIS
     Dosage: 300 MG, Q4W
     Route: 058
  2. COSENTYX [Suspect]
     Active Substance: SECUKINUMAB
     Indication: PSORIATIC ARTHROPATHY
     Dosage: 160 MG, QMO
     Route: 058

REACTIONS (6)
  - Diabetic foot [Unknown]
  - Wound [Recovering/Resolving]
  - Type 2 diabetes mellitus [Unknown]
  - Impaired healing [Unknown]
  - Psoriasis [Unknown]
  - Drug ineffective [Unknown]
